FAERS Safety Report 13270803 (Version 2)
Quarter: 2017Q3

REPORT INFORMATION
  Report Type: Spontaneous
  Country: US (occurrence: US)
  Receive Date: 20170225
  Receipt Date: 20170807
  Transmission Date: 20171127
  Serious: No
  Sender: FDA-Public Use
  Company Number: US-B.I. PHARMACEUTICALS,INC./RIDGEFIELD-2017-BI-009655

PATIENT
  Age: 65 Year
  Sex: Female

DRUGS (2)
  1. METFORMIN [Concomitant]
     Active Substance: METFORMIN HYDROCHLORIDE
     Indication: DIABETES MELLITUS
     Dosage: ONE DAILY WITH DINNER;  FORM STRENGTH: 500MG; FORMULATION: TABLET
     Route: 048
  2. MICARDIS [Suspect]
     Active Substance: TELMISARTAN
     Indication: HYPERTENSION
     Dosage: ONE DAILY IN MORNING;  FORM STRENGTH: 40 MG; FORMULATION: TABLET? ADMINISTRATION CORRECT? NO ?ACTION
     Route: 048
     Dates: start: 2010

REACTIONS (5)
  - Product physical issue [Unknown]
  - Product packaging issue [Unknown]
  - Lethargy [Recovered/Resolved]
  - Hypotension [Unknown]
  - Product blister packaging issue [Unknown]

NARRATIVE: CASE EVENT DATE: 20170214
